FAERS Safety Report 11520448 (Version 1)
Quarter: 2015Q3

REPORT INFORMATION
  Report Type: Spontaneous
  Country: US (occurrence: US)
  Receive Date: 20150918
  Receipt Date: 20150918
  Transmission Date: 20151125
  Serious: No
  Sender: FDA-Public Use
  Company Number: US-RB-077022-15

PATIENT

DRUGS (6)
  1. MUCINEX MAXIMUM STRENGTH [Suspect]
     Active Substance: GUAIFENESIN
     Indication: PNEUMONIA
  2. MUCINEX MAXIMUM STRENGTH [Suspect]
     Active Substance: GUAIFENESIN
     Indication: ASTHMA
     Dosage: 1200MG. PATIENT LAST USED THE PRODUCT ON 06/MAR/2015.,QD
     Route: 065
  3. MUCINEX D MAXIMUM STRENGTH [Suspect]
     Active Substance: GUAIFENESIN\PSEUDOEPHEDRINE HYDROCHLORIDE
     Indication: ASTHMA
     Dosage: 1200MG. PATIENT LAST USED THE PRODUCT ON 06/MAR/2015.,QD
     Route: 065
  4. MUCINEX MAXIMUM STRENGTH [Suspect]
     Active Substance: GUAIFENESIN
     Indication: SINUS DISORDER
  5. MUCINEX D MAXIMUM STRENGTH [Suspect]
     Active Substance: GUAIFENESIN\PSEUDOEPHEDRINE HYDROCHLORIDE
     Indication: SINUS DISORDER
  6. MUCINEX D MAXIMUM STRENGTH [Suspect]
     Active Substance: GUAIFENESIN\PSEUDOEPHEDRINE HYDROCHLORIDE
     Indication: PNEUMONIA

REACTIONS (3)
  - No adverse event [Unknown]
  - Product use issue [Unknown]
  - Incorrect drug administration duration [Unknown]
